FAERS Safety Report 6773203-9 (Version None)
Quarter: 2010Q2

REPORT INFORMATION
  Report Type: 
  Country: None (occurrence: None)
  Receive Date: 20100616
  Receipt Date: 20100614
  Transmission Date: 20101027
  Serious: Yes (Life-Threatening, Hospitalization)
  Sender: FDA-Public Use
  Company Number: PHHO2010DE09086

PATIENT
  Sex: Male
  Weight: 82 kg

DRUGS (4)
  1. NEORAL [Suspect]
     Indication: LIVER TRANSPLANT
     Dosage: 125 MG, BID
     Route: 048
     Dates: start: 20090422
  2. CELLCEPT [Concomitant]
     Indication: LIVER TRANSPLANT
  3. URSODIOL [Concomitant]
     Indication: BILE OUTPUT
  4. IDEOS [Concomitant]

REACTIONS (3)
  - BLOOD PRESSURE INCREASED [None]
  - CEREBRAL HAEMORRHAGE [None]
  - HEADACHE [None]
